FAERS Safety Report 5104830-2 (Version None)
Quarter: 2006Q3

REPORT INFORMATION
  Report Type: 
  Country: None (occurrence: None)
  Receive Date: 20060911
  Receipt Date: 20060831
  Transmission Date: 20061208
  Serious: Yes (Other)
  Sender: FDA-Public Use
  Company Number: 2006106009

PATIENT
  Age: 68 Year
  Sex: Female
  Weight: 90.7194 kg

DRUGS (5)
  1. LIPITOR [Suspect]
     Indication: CATHETERISATION CARDIAC
     Dosage: 40 MG (40 MG, 1 IN 1 D), ORAL
     Route: 048
     Dates: start: 20060822, end: 20060824
  2. LIPITOR [Suspect]
     Indication: STENT PLACEMENT
     Dosage: 40 MG (40 MG, 1 IN 1 D), ORAL
     Route: 048
     Dates: start: 20060822, end: 20060824
  3. NORVASC [Concomitant]
  4. GLIPIZIDE [Concomitant]
  5. ASPIRIN [Concomitant]

REACTIONS (6)
  - ADVERSE DRUG REACTION [None]
  - DISCOMFORT [None]
  - GAIT DISTURBANCE [None]
  - IMMOBILE [None]
  - PAIN IN EXTREMITY [None]
  - TREMOR [None]
